FAERS Safety Report 9882782 (Version 1)
Quarter: 2014Q1

REPORT INFORMATION
  Report Type: Spontaneous
  Country: US (occurrence: US)
  Receive Date: 20140207
  Receipt Date: 20140207
  Transmission Date: 20141002
  Serious: Yes (Other)
  Sender: FDA-Public Use
  Company Number: US-PFIZER INC-2014031329

PATIENT
  Age: 56 Year
  Sex: Female
  Weight: 63.49 kg

DRUGS (2)
  1. ROBITUSSIN COUGH AND CHEST CONGESTION DM [Suspect]
     Indication: COUGH
     Dosage: 10 ML, UNK (AS DIRECTED)
     Route: 048
     Dates: start: 20140201, end: 20140202
  2. ROBITUSSIN COUGH AND CHEST CONGESTION DM [Suspect]
     Indication: MALAISE

REACTIONS (6)
  - Gastric ulcer [Unknown]
  - Gastric perforation [Unknown]
  - Abdominal discomfort [Unknown]
  - Abdominal pain upper [Unknown]
  - Nausea [Unknown]
  - Drug ineffective [Unknown]
